FAERS Safety Report 7364732-8 (Version None)
Quarter: 2011Q1

REPORT INFORMATION
  Report Type: 
  Country: None (occurrence: None)
  Receive Date: 20110321
  Receipt Date: 20110215
  Transmission Date: 20110831
  Serious: Yes (Other)
  Sender: FDA-Public Use
  Company Number: PHHY2011PL13187

PATIENT
  Age: 59 Year
  Sex: Female
  Weight: 94 kg

DRUGS (2)
  1. METHOTREXATE [Suspect]
     Indication: RHEUMATOID ARTHRITIS
     Dosage: 20 MG, UNK
     Route: 048
     Dates: start: 20030101
  2. METHOTREXATE [Suspect]
     Dosage: 10 MG, UNK
     Route: 030
     Dates: start: 20100101

REACTIONS (3)
  - EPIGASTRIC DISCOMFORT [None]
  - HYPERGLYCAEMIA [None]
  - NAUSEA [None]
